FAERS Safety Report 11222800 (Version 5)
Quarter: 2016Q1

REPORT INFORMATION
  Report Type: Spontaneous
  Country: US (occurrence: US)
  Receive Date: 20150626
  Receipt Date: 20160210
  Transmission Date: 20160525
  Serious: No
  Sender: FDA-Public Use
  Company Number: US-PFIZER INC-2015210357

PATIENT
  Age: 63 Year
  Sex: Male

DRUGS (5)
  1. VIAGRA [Interacting]
     Active Substance: SILDENAFIL CITRATE
     Dosage: 50 MG, UNK
     Route: 048
  2. VIAGRA [Suspect]
     Active Substance: SILDENAFIL CITRATE
     Indication: ERECTILE DYSFUNCTION
     Dosage: 25 MG, UNK
     Route: 048
  3. CARVEDILOL. [Interacting]
     Active Substance: CARVEDILOL
     Indication: BLOOD PRESSURE ABNORMAL
     Dosage: 25 MG, 2X/DAY
     Route: 048
  4. VIAGRA [Interacting]
     Active Substance: SILDENAFIL CITRATE
     Dosage: 100 MG (1 TAB 1 HOUR BEFORE SEX BUT NOT MORE OFTEN THAN EVERY 3 DAYS)
     Route: 048
     Dates: start: 20151203, end: 20151210
  5. CARVEDILOL. [Interacting]
     Active Substance: CARVEDILOL
     Indication: CARDIAC DISORDER

REACTIONS (3)
  - Drug ineffective [Recovered/Resolved]
  - Peripheral coldness [Recovered/Resolved]
  - Drug interaction [Unknown]
